FAERS Safety Report 5321370-6 (Version None)
Quarter: 2007Q2

REPORT INFORMATION
  Report Type: 
  Country: None (occurrence: None)
  Receive Date: 20070510
  Receipt Date: 20070503
  Transmission Date: 20071010
  Serious: Yes (Death, Hospitalization, Other)
  Sender: FDA-Public Use
  Company Number: US-JNJFOC-20070501261

PATIENT
  Age: 9 Decade
  Sex: Female

DRUGS (3)
  1. LEVAQUIN [Suspect]
     Indication: PNEUMONIA
     Route: 042
  2. LEVAQUIN [Suspect]
     Indication: DRUG USE FOR UNKNOWN INDICATION
     Route: 048
  3. CARDIAZEM [Concomitant]
     Indication: BLOOD PRESSURE
     Route: 065

REACTIONS (4)
  - DEATH [None]
  - PURPURA [None]
  - RASH [None]
  - VASCULITIS [None]
